FAERS Safety Report 25981983 (Version 1)
Quarter: 2025Q4

REPORT INFORMATION
  Report Type: Spontaneous
  Country: CN (occurrence: CN)
  Receive Date: 20251031
  Receipt Date: 20251031
  Transmission Date: 20260118
  Serious: Yes (Other)
  Sender: SHENZHEN TECHDOW PHARMACEUTICAL
  Company Number: CN-adr44030518216-HPR2025000670

PATIENT
  Age: 75 Year
  Sex: Male
  Weight: 40 kg

DRUGS (1)
  1. ENOXAPARIN SODIUM [Suspect]
     Active Substance: ENOXAPARIN SODIUM
     Indication: Thrombosis prophylaxis
     Dosage: 2000IU,QD
     Dates: start: 20250918, end: 20251013

REACTIONS (1)
  - Prothrombin time abnormal [Unknown]

NARRATIVE: CASE EVENT DATE: 20251013
